FAERS Safety Report 18823047 (Version 6)
Quarter: 2022Q1

REPORT INFORMATION
  Report Type: Spontaneous
  Country: PK (occurrence: PK)
  Receive Date: 20210202
  Receipt Date: 20220214
  Transmission Date: 20220424
  Serious: Yes (Other)
  Sender: FDA-Public Use
  Company Number: PK-PFIZER INC-2019514562

PATIENT
  Age: 66 Year
  Sex: Male
  Weight: 68 kg

DRUGS (8)
  1. SUTENT [Suspect]
     Active Substance: SUNITINIB MALATE
     Indication: Renal cell carcinoma
     Dosage: 25 MG, CYCLIC, (12.5MG TWICE DAILY, 4 WEEKS ON 2 WEEKS OFF)
  2. SUTENT [Suspect]
     Active Substance: SUNITINIB MALATE
     Dosage: 37.5 MG, CYCLIC (4 WEEKS ON 2 WEEKS OFF)
  3. SUTENT [Suspect]
     Active Substance: SUNITINIB MALATE
     Dosage: 12.5 MG, CYCLIC (2+1) ALTERNATE (1+1)
  4. SUTENT [Suspect]
     Active Substance: SUNITINIB MALATE
     Dosage: 12.5 MG, 2X/DAY
     Route: 048
     Dates: start: 20191125
  5. AVELOX [Concomitant]
     Active Substance: MOXIFLOXACIN HYDROCHLORIDE
     Dosage: 5 UNKNOWN UNIT
  6. PANADOL [Concomitant]
     Active Substance: ACETAMINOPHEN
     Dosage: 1, UNKNOWN UNIT
  7. GOURIC [FEBUXOSTAT] [Concomitant]
     Dosage: 40 MG
  8. SODAMINT [SODIUM BICARBONATE] [Concomitant]

REACTIONS (11)
  - Myocardial ischaemia [Unknown]
  - Diabetes mellitus [Unknown]
  - Red blood cell count decreased [Unknown]
  - Neutrophil count decreased [Unknown]
  - Blood sodium decreased [Unknown]
  - Pyrexia [Unknown]
  - Blood chloride decreased [Unknown]
  - Cough [Not Recovered/Not Resolved]
  - Swelling face [Unknown]
  - Respiratory tract congestion [Unknown]
  - Depression [Unknown]

NARRATIVE: CASE EVENT DATE: 20191221
